FAERS Safety Report 18998502 (Version 2)
Quarter: 2021Q2

REPORT INFORMATION
  Report Type: Spontaneous
  Country: FR (occurrence: FR)
  Receive Date: 20210312
  Receipt Date: 20210413
  Transmission Date: 20210717
  Serious: Yes (Disabling, Other)
  Sender: FDA-Public Use
  Company Number: FR-SA-2021SA081003

PATIENT
  Sex: Female
  Weight: 50 kg

DRUGS (1)
  1. DUPIXENT [Suspect]
     Active Substance: DUPILUMAB
     Indication: DERMATITIS ATOPIC
     Dosage: 300 MG, QOW
     Route: 030
     Dates: start: 202101

REACTIONS (7)
  - Loss of personal independence in daily activities [Unknown]
  - Incorrect route of product administration [Unknown]
  - Renal pain [Unknown]
  - Tubulointerstitial nephritis [Unknown]
  - Nephrolithiasis [Unknown]
  - Back pain [Recovered/Resolved]
  - Blood creatine increased [Unknown]

NARRATIVE: CASE EVENT DATE: 2021
